FAERS Safety Report 8909195 (Version 2)
Quarter: 2012Q4

REPORT INFORMATION
  Report Type: Spontaneous
  Country: GB (occurrence: None)
  Receive Date: 20121107
  Receipt Date: 20121121
  Transmission Date: 20130627
  Serious: Yes (Other)
  Sender: FDA-Public Use
  Company Number: AUR-APL-2012-04730

PATIENT
  Age: 83 Year

DRUGS (8)
  1. OLANZAPINE (OLANZAPINE) [Suspect]
     Indication: DRUG USE FOR UNKNOWN INDICATION
  2. CIPROFLOXACIN (CIPROFLOXACIN) [Concomitant]
  3. MACROGOL (MACROGOL) [Concomitant]
  4. NUTRITIONAL SUPPLEMENT (NUTRITION 6) [Concomitant]
  5. OMEPRAZOLE (OMEPRAZOLE) [Concomitant]
  6. PARACETAMOL (PARACETAMOL) [Concomitant]
  7. SALBUTAMOL (SALBUTAMOL) [Concomitant]
  8. TIOTROPIUM BROMIDE (TIOTROPIUM BROMIDE) [Concomitant]

REACTIONS (4)
  - Parkinson^s disease [None]
  - Tardive dyskinesia [None]
  - Athetosis [None]
  - Cachexia [None]
